FAERS Safety Report 18961992 (Version 1)
Quarter: 2021Q1

REPORT INFORMATION
  Report Type: Spontaneous
  Country: AU (occurrence: AU)
  Receive Date: 20210302
  Receipt Date: 20210302
  Transmission Date: 20210420
  Serious: No
  Sender: FDA-Public Use
  Company Number: AU-LUPIN PHARMACEUTICALS INC.-2021-02395

PATIENT
  Sex: Female

DRUGS (8)
  1. CICLOSPORIN [Suspect]
     Active Substance: CYCLOSPORINE
     Indication: ALOPECIA SCARRING
     Dosage: UNK
     Route: 065
  2. SPIRONOLACTONE. [Concomitant]
     Active Substance: SPIRONOLACTONE
     Indication: ALOPECIA SCARRING
     Dosage: UNK
     Route: 065
  3. MINOXIDIL. [Concomitant]
     Active Substance: MINOXIDIL
     Indication: ALOPECIA SCARRING
     Dosage: UNK
     Route: 065
  4. CLOBETASOL PROPIONATE. [Concomitant]
     Active Substance: CLOBETASOL PROPIONATE
     Indication: ALOPECIA SCARRING
     Dosage: UNK
     Route: 061
  5. CLARITHROMYCIN. [Concomitant]
     Active Substance: CLARITHROMYCIN
     Indication: ALOPECIA SCARRING
     Dosage: UNK
     Route: 065
  6. TRIAMCINOLONE [Suspect]
     Active Substance: TRIAMCINOLONE
     Indication: ALOPECIA SCARRING
     Dosage: UNK
     Route: 026
  7. TOFACITINIB [Concomitant]
     Active Substance: TOFACITINIB
     Indication: ALOPECIA SCARRING
     Dosage: 2.5 MILLIGRAM, QD
     Route: 065
  8. CLINDAMYCIN. [Concomitant]
     Active Substance: CLINDAMYCIN
     Indication: ALOPECIA SCARRING
     Dosage: UNK
     Route: 061

REACTIONS (1)
  - Treatment failure [Unknown]
